FAERS Safety Report 11024814 (Version 1)
Quarter: 2015Q2

REPORT INFORMATION
  Report Type: Spontaneous
  Country: RU (occurrence: None)
  Receive Date: 20150410
  Receipt Date: 20150410
  Transmission Date: 20150821
  Serious: No
  Sender: FDA-Public Use
  Company Number: 1503RUS008514

PATIENT
  Sex: Female

DRUGS (1)
  1. CEDEX (CEFTIBUTEN) CAPSULE [Suspect]
     Active Substance: CEFTIBUTEN
     Dosage: FORMULATION ALSO REPORTED AS TABLET, ROUTE REPORTED AS PER OS, ORAL
     Route: 048
     Dates: start: 201303

REACTIONS (3)
  - Nausea [None]
  - Hyperhidrosis [None]
  - Asthenia [None]

NARRATIVE: CASE EVENT DATE: 201303
